FAERS Safety Report 5603916-3 (Version None)
Quarter: 2008Q1

REPORT INFORMATION
  Report Type: 
  Country: None (occurrence: None)
  Receive Date: 20080123
  Receipt Date: 20080123
  Transmission Date: 20080703
  Serious: Yes (Hospitalization)
  Sender: FDA-Public Use
  Company Number: None

PATIENT
  Sex: Male
  Weight: 82.5 kg

DRUGS (4)
  1. TEMOZOLOMIDE [Suspect]
     Dosage: 2240 MG
  2. TEMOZOLOMIDE [Suspect]
  3. TEMOZOLOMIDE [Suspect]
  4. ONDANSETRON (ANTIEMETIC) [Concomitant]

REACTIONS (2)
  - NAUSEA [None]
  - VOMITING [None]
